FAERS Safety Report 8974224 (Version 1)
Quarter: 2012Q4

REPORT INFORMATION
  Report Type: Spontaneous
  Country: US (occurrence: None)
  Receive Date: 20121211
  Receipt Date: 20121211
  Transmission Date: 20130627
  Serious: Yes (Hospitalization)
  Sender: FDA-Public Use
  Company Number: UTC-026305

PATIENT
  Age: 80 Year
  Sex: Female
  Weight: 62.27 kg

DRUGS (5)
  1. REMODULIN (2.5 MILLIGRAM/MILLILITERS, INJECTION FOR INFUSION) (TREPROSTINIL SODIUM) [Suspect]
     Indication: CHRONIC PULMONARY HEART DISEASE
     Route: 058
     Dates: start: 20121130
  2. REMODULIN (2.5 MILLIGRAM/MILLILITERS, INJECTION FOR INFUSION) (TREPROSTINIL SODIUM) [Suspect]
     Indication: CHRONIC PULMONARY HEART DISEASE
     Dosage: 23.04 ug/kg (0.016 ug/kg, 1 in 1 min), Subcutaneous
     Dates: start: 20121123
  3. REMODULIN (2.5 MILLIGRAM/MILLILITERS, INJECTION FOR INFUSION) (TREPROSTINIL SODIUM) [Suspect]
     Indication: CHRONIC PULMONARY HEART DISEASE
  4. COUMADIN (WARFARIN SODIUM) [Concomitant]
  5. ADCIRCA (TADALAFIL) [Suspect]

REACTIONS (2)
  - Asthenia [None]
  - Diarrhoea [None]
